FAERS Safety Report 5258775-8 (Version None)
Quarter: 2007Q1

REPORT INFORMATION
  Report Type: 
  Country: None (occurrence: None)
  Receive Date: 20070306
  Receipt Date: 20070306
  Transmission Date: 20070707
  Serious: Yes (Other)
  Sender: FDA-Public Use
  Company Number: None

PATIENT
  Age: 49 Year
  Sex: Female
  Weight: 113.3993 kg

DRUGS (1)
  1. ABILIFY [Suspect]
     Indication: BIPOLAR DISORDER
     Dosage: 5 MG ONE AT NIGHT PO
     Route: 048
     Dates: start: 20040401, end: 20070301

REACTIONS (3)
  - GAMBLING [None]
  - MARITAL PROBLEM [None]
  - OBSESSIVE-COMPULSIVE DISORDER [None]
